FAERS Safety Report 7813407-7 (Version None)
Quarter: 2011Q4

REPORT INFORMATION
  Report Type: 
  Country: None (occurrence: None)
  Receive Date: 20111014
  Receipt Date: 20111006
  Transmission Date: 20120403
  Serious: Yes (Death, Hospitalization, Other)
  Sender: FDA-Public Use
  Company Number: US-BIOGENIDEC-2009BI023257

PATIENT
  Age: 50 Year
  Sex: Female

DRUGS (3)
  1. TYSABRI [Suspect]
     Route: 042
     Dates: start: 20101006, end: 20110323
  2. ASCORBIC ACID [Concomitant]
  3. TYSABRI [Suspect]
     Indication: MULTIPLE SCLEROSIS
     Route: 042
     Dates: start: 20080219, end: 20091118

REACTIONS (3)
  - ABDOMINAL PAIN [None]
  - GASTROINTESTINAL DISORDER [None]
  - AMYOTROPHIC LATERAL SCLEROSIS [None]
